FAERS Safety Report 11419769 (Version 1)
Quarter: 2015Q3

REPORT INFORMATION
  Report Type: Spontaneous
  Country: US (occurrence: None)
  Receive Date: 20150825
  Receipt Date: 20150825
  Transmission Date: 20151125
  Serious: No
  Sender: FDA-Public Use
  Company Number: None

PATIENT
  Age: 75 Year
  Sex: Male
  Weight: 88.91 kg

DRUGS (3)
  1. BACTRIM DS [Suspect]
     Active Substance: SULFAMETHOXAZOLE\TRIMETHOPRIM
     Indication: URINARY TRACT INFECTION
     Dosage: TAKEN BY MOUTH
     Dates: start: 20150803, end: 20150814
  2. GLUCOSAMINE [Concomitant]
     Active Substance: GLUCOSAMINE
  3. CONDROITIN [Concomitant]

REACTIONS (3)
  - Arrhythmia [None]
  - Dizziness [None]
  - Rash [None]

NARRATIVE: CASE EVENT DATE: 20150821
